FAERS Safety Report 24165227 (Version 3)
Quarter: 2024Q3

REPORT INFORMATION
  Report Type: Spontaneous
  Country: US (occurrence: US)
  Receive Date: 20240802
  Receipt Date: 20240927
  Transmission Date: 20241017
  Serious: No
  Sender: TEVA
  Company Number: US-TEVA-VS-3226410

PATIENT
  Age: 85 Year
  Sex: Female
  Weight: 158 kg

DRUGS (3)
  1. CLONIDINE HYDROCHLORIDE [Suspect]
     Active Substance: CLONIDINE HYDROCHLORIDE
     Indication: Hypertension
     Dosage: 0.2 MG/24HR,  ONE 0.2MG PATCH AND ONE 0.1MG PATCH
     Route: 062
  2. CLONIDINE HYDROCHLORIDE [Suspect]
     Active Substance: CLONIDINE HYDROCHLORIDE
     Dosage: 0.1 MG/24H,  ONE 0.2MG PATCH AND TWO 0.1MG PATCHES
     Route: 062
  3. CLONIDINE HYDROCHLORIDE [Suspect]
     Active Substance: CLONIDINE HYDROCHLORIDE
     Dosage: 0.3 MG/24HR, ONE 0.3MG PATCH AND ONE 0.1MG PATCH
     Route: 062

REACTIONS (1)
  - Product prescribing error [Unknown]
